FAERS Safety Report 6970890-7 (Version None)
Quarter: 2010Q3

REPORT INFORMATION
  Report Type: 
  Country: None (occurrence: None)
  Receive Date: 20100908
  Receipt Date: 20100830
  Transmission Date: 20110219
  Serious: Yes (Hospitalization)
  Sender: FDA-Public Use
  Company Number: BR-US-EMD SERONO, INC.-7016215

PATIENT
  Sex: Female

DRUGS (7)
  1. REBIF [Suspect]
     Indication: RELAPSING-REMITTING MULTIPLE SCLEROSIS
     Route: 058
     Dates: start: 20040101
  2. ADALAT [Concomitant]
  3. CAPTOPRIL [Concomitant]
  4. CLORANA [Concomitant]
  5. FLUOXETINE [Concomitant]
  6. ACETAMINOPHEN [Concomitant]
  7. RETEMIC [Concomitant]

REACTIONS (7)
  - DIABETES MELLITUS [None]
  - DIPLOPIA [None]
  - EYELID PTOSIS [None]
  - LIVER FUNCTION TEST ABNORMAL [None]
  - MULTIPLE SCLEROSIS RELAPSE [None]
  - MUSCULAR WEAKNESS [None]
  - URINARY TRACT INFECTION [None]
